FAERS Safety Report 8806686 (Version 2)
Quarter: 2013Q2

REPORT INFORMATION
  Report Type: Report from Study
  Country: BR (occurrence: BR)
  Receive Date: 20120925
  Receipt Date: 20130424
  Transmission Date: 20140414
  Serious: Yes (Other)
  Sender: FDA-Public Use
  Company Number: PHHY2012BR082760

PATIENT
  Age: 59 Year
  Sex: Female

DRUGS (7)
  1. FORASEQ [Suspect]
     Indication: BRONCHITIS
     Dosage: 2 DF, QD
  2. ATENOLOL [Concomitant]
     Indication: BLOOD PRESSURE INCREASED
     Dosage: 2 DF, QD
     Route: 048
  3. ATENOLOL [Concomitant]
     Indication: HEART RATE INCREASED
  4. INDAPEN//INDAPAMIDE [Concomitant]
     Indication: BLOOD PRESSURE INCREASED
     Dosage: 1 DF, QD
  5. ALLOPURINOL [Concomitant]
     Indication: BLOOD URIC ACID INCREASED
     Dosage: 1 DF, QD
     Route: 048
  6. AMLODIPINE BESILATE [Concomitant]
     Indication: BLOOD PRESSURE INCREASED
     Dosage: 2 DF, QD
     Route: 048
  7. OMEPRAZOLE [Concomitant]
     Indication: GASTRITIS
     Dosage: 2 DF, QD (DAILY, WHEN NECESSARY)

REACTIONS (5)
  - Fall [Recovering/Resolving]
  - Foot fracture [Recovering/Resolving]
  - Gait disturbance [Recovering/Resolving]
  - Blood pressure increased [Unknown]
  - Osteoporosis [Recovering/Resolving]
